FAERS Safety Report 23535384 (Version 2)
Quarter: 2024Q1

REPORT INFORMATION
  Report Type: Report from Study
  Country: US (occurrence: None)
  Receive Date: 20240218
  Receipt Date: 20240314
  Transmission Date: 20240410
  Serious: Yes (Other)
  Sender: FDA-Public Use
  Company Number: 2024A034114

PATIENT
  Age: 58 Year
  Sex: Male

DRUGS (8)
  1. FARXIGA [Suspect]
     Active Substance: DAPAGLIFLOZIN PROPANEDIOL
     Route: 048
  2. PRILOSEC [Suspect]
     Active Substance: OMEPRAZOLE MAGNESIUM
     Route: 048
  3. CLOPIDOGREL [Concomitant]
     Active Substance: CLOPIDOGREL BISULFATE
  4. ERGOCALCIFEROL [Concomitant]
     Active Substance: ERGOCALCIFEROL
  5. FUROEMIDE [Concomitant]
     Route: 048
  6. MONTELUKAST SODIUM [Concomitant]
     Active Substance: MONTELUKAST SODIUM
     Route: 048
  7. SPIRONELACTONE [Concomitant]
     Route: 048
  8. ENTRESTO [Concomitant]
     Active Substance: SACUBITRIL\VALSARTAN
     Route: 048

REACTIONS (8)
  - Ejection fraction decreased [Unknown]
  - Depression [Unknown]
  - Anxiety [Unknown]
  - Chest pain [Unknown]
  - Dyspnoea [Unknown]
  - Obesity [Unknown]
  - Oedema [Unknown]
  - Cardiac murmur [Unknown]
